FAERS Safety Report 18236449 (Version 2)
Quarter: 2020Q3

REPORT INFORMATION
  Report Type: Spontaneous
  Country: SE (occurrence: SE)
  Receive Date: 20200907
  Receipt Date: 20200908
  Transmission Date: 20201103
  Serious: Yes (Other)
  Sender: FDA-Public Use
  Company Number: SE-SUN PHARMACEUTICAL INDUSTRIES LTD-2020RR-255034

PATIENT
  Age: 20 Year
  Sex: Female

DRUGS (1)
  1. VENLAFAXINE [Suspect]
     Active Substance: VENLAFAXINE HYDROCHLORIDE
     Indication: PRODUCT USED FOR UNKNOWN INDICATION
     Dosage: UNK, DAILY
     Route: 065

REACTIONS (6)
  - Hyperhidrosis [Unknown]
  - Contusion [Unknown]
  - Hypertonic bladder [Unknown]
  - Dry mouth [Unknown]
  - Alopecia [Unknown]
  - Dyskinesia [Unknown]

NARRATIVE: CASE EVENT DATE: 2020
